FAERS Safety Report 4940284-4 (Version None)
Quarter: 2006Q1

REPORT INFORMATION
  Report Type: 
  Country: None (occurrence: None)
  Receive Date: 20060310
  Receipt Date: 20050302
  Transmission Date: 20060701
  Serious: Yes (Death, Hospitalization)
  Sender: FDA-Public Use
  Company Number: US-MERCK-0503USA00370

PATIENT
  Age: 47 Year
  Sex: Male
  Weight: 95 kg

DRUGS (2)
  1. VIOXX [Suspect]
     Indication: ARTHRALGIA
     Route: 048
     Dates: start: 20020906, end: 20030330
  2. VIOXX [Suspect]
     Indication: ARTHRITIS
     Route: 048
     Dates: start: 20020906, end: 20030330

REACTIONS (3)
  - CHEST PAIN [None]
  - DYSPNOEA [None]
  - MYOCARDIAL INFARCTION [None]
